FAERS Safety Report 8322894 (Version 2)
Quarter: 2012Q4

REPORT INFORMATION
  Report Type: Spontaneous
  Country: GB (occurrence: None)
  Receive Date: 20111223
  Receipt Date: 20120813
  Transmission Date: 20130627
  Serious: Yes (Other)
  Sender: FDA-Public Use
  Company Number: GER/UKI/11/0022388

PATIENT
  Age: 50 Year
  Sex: Male

DRUGS (4)
  1. OLANZAPINE [Suspect]
     Indication: PRODUCT USED FOR UNKNOWN INDICATION
     Dosage: 20 MG, ORAL
     Route: 048
  2. CARBAMAZEPINE [Concomitant]
  3. DIHYDROCODEINE BITARTRATE [Concomitant]
  4. SERETIDE (SERETIDE) [Concomitant]

REACTIONS (3)
  - Pituitary tumour benign [None]
  - Blood prolactin increased [None]
  - Poor venous access [None]
